FAERS Safety Report 5154326-7 (Version None)
Quarter: 2006Q4

REPORT INFORMATION
  Report Type: 
  Country: None (occurrence: None)
  Receive Date: 20061114
  Receipt Date: 20061031
  Transmission Date: 20070319
  Serious: Yes (Other)
  Sender: FDA-Public Use
  Company Number: 2006134747

PATIENT
  Sex: Female

DRUGS (1)
  1. PHENYTOIN [Suspect]
     Dosage: 450 MG, INTRAVENOUS
     Route: 042
     Dates: start: 20060802

REACTIONS (2)
  - MALAISE [None]
  - TREMOR [None]
